FAERS Safety Report 5420351-1 (Version None)
Quarter: 2007Q3

REPORT INFORMATION
  Report Type: 
  Country: None (occurrence: None)
  Receive Date: 20070718
  Receipt Date: 20070213
  Transmission Date: 20080115
  Serious: Yes (Hospitalization, Other)
  Sender: FDA-Public Use
  Company Number: 2006086425

PATIENT
  Age: 61 Year
  Sex: Male
  Weight: 96.2 kg

DRUGS (1)
  1. CELEBREX [Suspect]
     Indication: ARTHRITIS
     Dosage: 200 MG OR 400 MG (200 MG, 1 TO 2)
     Dates: start: 20030501

REACTIONS (2)
  - ANXIETY [None]
  - MYOCARDIAL INFARCTION [None]
